FAERS Safety Report 14638950 (Version 2)
Quarter: 2018Q2

REPORT INFORMATION
  Report Type: Report from Study
  Country: US (occurrence: US)
  Receive Date: 20180315
  Receipt Date: 20180502
  Transmission Date: 20180711
  Serious: Yes (Hospitalization, Other)
  Sender: FDA-Public Use
  Company Number: US-BRISTOL-MYERS SQUIBB COMPANY-BMS-2018-022412

PATIENT
  Age: 52 Year
  Sex: Female

DRUGS (3)
  1. IPILIMUMAB [Suspect]
     Active Substance: IPILIMUMAB
     Indication: MYELODYSPLASTIC SYNDROME
     Dosage: UNK
     Route: 065
  2. 5-AZACYTIDINE [Suspect]
     Active Substance: AZACITIDINE
     Indication: MYELODYSPLASTIC SYNDROME
     Dosage: UNK
     Route: 065
  3. NIVOLUMAB [Suspect]
     Active Substance: NIVOLUMAB
     Indication: MYELODYSPLASTIC SYNDROME
     Dosage: UNK
     Route: 065

REACTIONS (1)
  - Pericarditis [Unknown]

NARRATIVE: CASE EVENT DATE: 20180306
